FAERS Safety Report 15440631 (Version 1)
Quarter: 2018Q3

REPORT INFORMATION
  Report Type: Spontaneous
  Country: US (occurrence: US)
  Receive Date: 20180925
  Receipt Date: 20180925
  Transmission Date: 20181010
  Serious: No
  Sender: FDA-Public Use
  Company Number: None

PATIENT
  Age: 66 Year
  Sex: Male
  Weight: 122.47 kg

DRUGS (5)
  1. HUMIRA [Suspect]
     Active Substance: ADALIMUMAB
     Indication: RHEUMATOID ARTHRITIS
     Dosage: ?          OTHER FREQUENCY:EVERY 2 WEEKS;?
     Route: 058
     Dates: start: 20180908, end: 20180908
  2. METFORMIN [Concomitant]
     Active Substance: METFORMIN HYDROCHLORIDE
  3. OMEPRAZOLE. [Concomitant]
     Active Substance: OMEPRAZOLE
  4. METHOTREXATE. [Concomitant]
     Active Substance: METHOTREXATE
  5. FINASTERIDE. [Concomitant]
     Active Substance: FINASTERIDE

REACTIONS (8)
  - Sleep disorder [None]
  - Condition aggravated [None]
  - Wheezing [None]
  - Dysphonia [None]
  - Lung disorder [None]
  - Dyspnoea [None]
  - Productive cough [None]
  - Cough [None]

NARRATIVE: CASE EVENT DATE: 20180913
